FAERS Safety Report 25965898 (Version 1)
Quarter: 2025Q4

REPORT INFORMATION
  Report Type: Report from Study
  Country: EU (occurrence: EU)
  Receive Date: 20251027
  Receipt Date: 20251027
  Transmission Date: 20260117
  Serious: Yes (Other)
  Sender: ABBVIE
  Company Number: EU-ABBVIE-6519809

PATIENT
  Sex: Female

DRUGS (1)
  1. FOSCARBIDOPA\FOSLEVODOPA [Suspect]
     Active Substance: FOSCARBIDOPA\FOSLEVODOPA
     Indication: Parkinson^s disease
     Dosage: SD: 0.60 ML, CRN: 0.20 ML/H, CR: 0.22/H, CRH: 0.24 ML/H, ED: 0.30 ML.
     Route: 058
     Dates: start: 20240704

REACTIONS (4)
  - Leukaemia [Unknown]
  - Therapeutic product effect variable [Recovering/Resolving]
  - Infusion site mass [Unknown]
  - Gait inability [Recovering/Resolving]
